FAERS Safety Report 7559565-3 (Version None)
Quarter: 2011Q2

REPORT INFORMATION
  Report Type: 
  Country: None (occurrence: None)
  Receive Date: 20110621
  Receipt Date: 20110617
  Transmission Date: 20111010
  Serious: Yes (Death)
  Sender: FDA-Public Use
  Company Number: US-B.I. PHARMACEUTICALS,INC./RIDGEFIELD-2011-BP-15711BP

PATIENT
  Age: 80 Year
  Sex: Male

DRUGS (9)
  1. AMIODARONE HCL [Concomitant]
     Dosage: 200 MG
     Dates: end: 20110517
  2. RISPERDAL [Concomitant]
     Dosage: 1 MG
     Dates: end: 20110517
  3. SIMVASTATIN [Concomitant]
     Dosage: 40 MG
     Dates: end: 20110517
  4. WARFARIN SODIUM [Concomitant]
     Dosage: 1 MG
     Dates: end: 20110517
  5. LIOTHYRONINE SODIUM [Concomitant]
     Dosage: 5 MCG
     Dates: end: 20110517
  6. FLOMAX [Concomitant]
     Dosage: 0.4 MG
     Dates: end: 20110517
  7. LEVOTHYROXINE SODIUM [Concomitant]
     Dosage: 100 MCG
     Dates: end: 20110517
  8. STALEVO 100 [Concomitant]
     Dosage: 100 MG
     Dates: end: 20110517
  9. MIRAPEX [Suspect]
     Indication: PARKINSON'S DISEASE
     Dosage: 6 MG
     Route: 048
     Dates: start: 20080101, end: 20110517

REACTIONS (1)
  - DEATH [None]
